FAERS Safety Report 10086659 (Version 1)
Quarter: 2014Q2

REPORT INFORMATION
  Report Type: Spontaneous
  Country: US (occurrence: US)
  Receive Date: 20140418
  Receipt Date: 20140418
  Transmission Date: 20141212
  Serious: Yes (Other)
  Sender: FDA-Public Use
  Company Number: US-LUNDBECK-DKLU1099179

PATIENT
  Age: 2 Year
  Sex: Male

DRUGS (1)
  1. SABRIL (FOR ORAL SOLUTION) [Suspect]
     Indication: COMPLEX PARTIAL SEIZURES
     Dates: start: 20130103

REACTIONS (2)
  - Drug withdrawal convulsions [Unknown]
  - Drug dose omission [Recovered/Resolved]
